FAERS Safety Report 7089345-7 (Version None)
Quarter: 2010Q4

REPORT INFORMATION
  Report Type: 
  Country: None (occurrence: None)
  Receive Date: 20101108
  Receipt Date: 20101025
  Transmission Date: 20110411
  Serious: Yes (Death)
  Sender: FDA-Public Use
  Company Number: GB-ASTRAZENECA-2010SE50955

PATIENT
  Sex: Female

DRUGS (1)
  1. IRESSA [Suspect]
     Route: 048

REACTIONS (1)
  - DIARRHOEA [None]
